FAERS Safety Report 6557589-6 (Version None)
Quarter: 2010Q1

REPORT INFORMATION
  Report Type: 
  Country: None (occurrence: None)
  Receive Date: 20100129
  Receipt Date: 20100119
  Transmission Date: 20100710
  Serious: Yes (Hospitalization, Other)
  Sender: FDA-Public Use
  Company Number: FR-PFIZER INC-2009161735

PATIENT
  Age: 53 Year
  Sex: Male

DRUGS (9)
  1. VFEND [Suspect]
     Indication: ASPERGILLOSIS
     Dosage: UNK
     Route: 048
     Dates: start: 20060318, end: 20080811
  2. PROGRAF [Suspect]
     Dosage: UNK
     Route: 048
     Dates: start: 20020101
  3. CELLCEPT [Suspect]
     Dosage: UNK
     Route: 048
     Dates: start: 20020101
  4. CORTANCYL [Suspect]
     Dosage: UNK
     Route: 048
     Dates: start: 20020101
  5. CORTANCYL [Suspect]
     Dosage: UNK
     Dates: start: 20080801
  6. SPORANOX [Concomitant]
     Dosage: UNK
     Dates: start: 20080808
  7. EVEROLIMUS [Concomitant]
  8. TACROLIMUS [Concomitant]
  9. MYCOPHENOLATE SODIUM [Concomitant]

REACTIONS (3)
  - ACTINIC KERATOSIS [None]
  - PHOTOSENSITIVITY REACTION [None]
  - SQUAMOUS CELL CARCINOMA [None]
